FAERS Safety Report 4788635-8 (Version None)
Quarter: 2005Q4

REPORT INFORMATION
  Report Type: 
  Country: None (occurrence: None)
  Receive Date: 20051005
  Receipt Date: 20050930
  Transmission Date: 20060501
  Serious: Yes (Hospitalization)
  Sender: FDA-Public Use
  Company Number: JPKYO-S-20050024

PATIENT
  Age: 55 Year
  Sex: Male

DRUGS (8)
  1. NAVELBINE [Suspect]
     Dosage: 35MG PER DAY
     Route: 042
     Dates: start: 20050328, end: 20050519
  2. GEMZAR [Suspect]
     Dosage: 350MG PER DAY
     Route: 042
     Dates: start: 20050328, end: 20050519
  3. DECADRON [Concomitant]
     Dates: start: 20050328, end: 20050519
  4. KYTRIL [Concomitant]
     Dates: start: 20050328, end: 20050519
  5. DUROTEP [Concomitant]
     Dates: start: 20050328, end: 20050602
  6. GASTER [Concomitant]
     Dates: start: 20050328, end: 20050603
  7. LOXONIN [Concomitant]
     Dates: start: 20050328, end: 20050603
  8. AMOBAN [Concomitant]
     Dates: start: 20050328, end: 20050603

REACTIONS (4)
  - DYSPNOEA EXERTIONAL [None]
  - INTERSTITIAL LUNG DISEASE [None]
  - OXYGEN SATURATION DECREASED [None]
  - RALES [None]
